FAERS Safety Report 18843515 (Version 1)
Quarter: 2021Q1

REPORT INFORMATION
  Report Type: Spontaneous
  Country: US (occurrence: US)
  Receive Date: 20210203
  Receipt Date: 20210203
  Transmission Date: 20210419
  Serious: Yes (Hospitalization)
  Sender: FDA-Public Use
  Company Number: US-EXELIXIS-CABO-20027410

PATIENT
  Age: 87 Year
  Sex: Male

DRUGS (15)
  1. LEVOFLOXACIN. [Concomitant]
     Active Substance: LEVOFLOXACIN
  2. CYANOCOBALAMIN. [Concomitant]
     Active Substance: CYANOCOBALAMIN
  3. CABOMETYX [Suspect]
     Active Substance: CABOZANTINIB S-MALATE
     Indication: RENAL CELL CARCINOMA
     Dosage: 60 MG, QD
     Route: 048
     Dates: start: 20191203, end: 20200128
  4. ASPIRIN. [Concomitant]
     Active Substance: ASPIRIN
  5. FINASTERIDE. [Concomitant]
     Active Substance: FINASTERIDE
  6. COENZYME Q10 [Concomitant]
     Active Substance: DIETARY SUPPLEMENT\UBIDECARENONE
  7. ATORVASTATIN [Concomitant]
     Active Substance: ATORVASTATIN
  8. CHOLECALCIFEROL [Concomitant]
     Active Substance: CHOLECALCIFEROL
  9. SULFAMETHOXAZOLE AND TRIMETHOPRIM [Concomitant]
     Active Substance: SULFAMETHOXAZOLE\TRIMETHOPRIM
  10. CARVEDILOL. [Concomitant]
     Active Substance: CARVEDILOL
  11. FISH OIL [Concomitant]
     Active Substance: FISH OIL
  12. LEVOTHYROXINE SODIUM. [Concomitant]
     Active Substance: LEVOTHYROXINE SODIUM
  13. TAMSULOSIN [Concomitant]
     Active Substance: TAMSULOSIN
  14. ENALAPRIL [Concomitant]
     Active Substance: ENALAPRIL
  15. THIAMINE HYDROCHLORIDE. [Concomitant]
     Active Substance: THIAMINE HYDROCHLORIDE

REACTIONS (1)
  - Hyponatraemia [Not Recovered/Not Resolved]

NARRATIVE: CASE EVENT DATE: 20200129
